FAERS Safety Report 4874122-5 (Version None)
Quarter: 2006Q1

REPORT INFORMATION
  Report Type: 
  Country: None (occurrence: None)
  Receive Date: 20060104
  Receipt Date: 20051221
  Transmission Date: 20060701
  Serious: Yes (Death, Other)
  Sender: FDA-Public Use
  Company Number: 2005172415

PATIENT
  Age: 38 Year
  Sex: Female

DRUGS (1)
  1. ZYVOX [Suspect]
     Indication: OPEN WOUND
     Dates: end: 20050101

REACTIONS (4)
  - BACTERAEMIA [None]
  - ENTEROCOCCAL INFECTION [None]
  - PATHOGEN RESISTANCE [None]
  - WOUND INFECTION [None]
